FAERS Safety Report 10548383 (Version 2)
Quarter: 2015Q2

REPORT INFORMATION
  Report Type: Spontaneous
  Country: US (occurrence: None)
  Receive Date: 20141024
  Receipt Date: 20150528
  Transmission Date: 20150821
  Serious: Yes (Other)
  Sender: FDA-Public Use
  Company Number: KAD201410-001302

PATIENT
  Sex: Male

DRUGS (2)
  1. INTERFERON (INTERFERON) [Suspect]
     Active Substance: INTERFERON
     Indication: HEPATITIS C
  2. RIBAVIRIN (RIBAVIRIN) [Suspect]
     Active Substance: RIBAVIRIN
     Indication: HEPATITIS C

REACTIONS (7)
  - Unevaluable event [None]
  - Hypothalamo-pituitary disorder [None]
  - Testicular disorder [None]
  - Thyroid disorder [None]
  - Testicular neoplasm [None]
  - Pituitary tumour [None]
  - Loss of consciousness [None]
